FAERS Safety Report 25417954 (Version 1)
Quarter: 2025Q2

REPORT INFORMATION
  Report Type: Spontaneous
  Country: CN (occurrence: CN)
  Receive Date: 20250610
  Receipt Date: 20250610
  Transmission Date: 20250716
  Serious: Yes (Hospitalization)
  Sender: BAYER HEALTHCARE PHARMACEUTICALS INC.
  Company Number: CN-BAYER-2025A072612

PATIENT
  Age: 63 Year
  Sex: Female
  Weight: 41 kg

DRUGS (1)
  1. NEXAVAR [Suspect]
     Active Substance: SORAFENIB
     Indication: Clear cell renal cell carcinoma
     Dosage: 0.4 G, BID
     Route: 048
     Dates: start: 20250211, end: 20250517

REACTIONS (8)
  - Dizziness [None]
  - Nausea [None]
  - Vomiting [None]
  - Back pain [Recovering/Resolving]
  - Musculoskeletal pain [None]
  - Skin exfoliation [Recovering/Resolving]
  - Blister [None]
  - Pruritus [Recovering/Resolving]

NARRATIVE: CASE EVENT DATE: 20250101
